FAERS Safety Report 8571042-X (Version None)
Quarter: 2012Q3

REPORT INFORMATION
  Report Type: 
  Country: None (occurrence: None)
  Receive Date: 20120730
  Receipt Date: 20120730
  Transmission Date: 20120928
  Serious: Yes (Other)
  Sender: FDA-Public Use
  Company Number: None

PATIENT
  Age: 33 Year
  Sex: Female
  Weight: 54.4316 kg

DRUGS (1)
  1. CEPHALEXIN [Suspect]
     Indication: MASTITIS
     Dosage: 500MG 4 TIMES A DAY PO
     Route: 048
     Dates: start: 20120726, end: 20120727

REACTIONS (12)
  - PRODUCT SUBSTITUTION ISSUE [None]
  - VULVOVAGINAL PRURITUS [None]
  - SENSATION OF HEAVINESS [None]
  - PRURITUS [None]
  - VULVOVAGINAL ERYTHEMA [None]
  - VULVOVAGINAL DISCOMFORT [None]
  - HEADACHE [None]
  - SKIN EXFOLIATION [None]
  - PAIN IN EXTREMITY [None]
  - CHEST DISCOMFORT [None]
  - DYSPHAGIA [None]
  - DRY MOUTH [None]
